FAERS Safety Report 5808241-3 (Version None)
Quarter: 2008Q3

REPORT INFORMATION
  Report Type: 
  Country: None (occurrence: None)
  Receive Date: 20080709
  Receipt Date: 20080627
  Transmission Date: 20090109
  Serious: Yes (Hospitalization)
  Sender: FDA-Public Use
  Company Number: 14598

PATIENT
  Age: 67 Year
  Sex: Female

DRUGS (2)
  1. MORPHINE SULFATE [Suspect]
     Indication: ARTHRALGIA
     Dosage: 30 MG BID ORALLY
     Route: 048
     Dates: start: 20070101, end: 20080101
  2. MORPHINE SULFATE [Suspect]
     Indication: BACK PAIN
     Dosage: 30 MG BID ORALLY
     Route: 048
     Dates: start: 20070101, end: 20080101

REACTIONS (4)
  - ABDOMINAL PAIN UPPER [None]
  - FEELING ABNORMAL [None]
  - HYPOTENSION [None]
  - PHARMACEUTICAL PRODUCT COMPLAINT [None]
